FAERS Safety Report 4437074-8 (Version None)
Quarter: 2004Q3

REPORT INFORMATION
  Report Type: 
  Country: None (occurrence: None)
  Receive Date: 20040827
  Receipt Date: 20040814
  Transmission Date: 20050211
  Serious: Yes (Other)
  Sender: FDA-Public Use
  Company Number: 2004056069

PATIENT
  Age: 61 Year
  Sex: Female

DRUGS (2)
  1. ROGAINE [Suspect]
     Dosage: 1 ML TWICE A DAY, TOPICAL
     Route: 061
     Dates: start: 20030201, end: 20040801
  2. LEVOTHYROXINE SODIUM [Concomitant]

REACTIONS (4)
  - BLINDNESS [None]
  - DRUG INEFFECTIVE [None]
  - HAIR COLOUR CHANGES [None]
  - MACULAR DEGENERATION [None]
